FAERS Safety Report 8208413-7 (Version None)
Quarter: 2012Q1

REPORT INFORMATION
  Report Type: 
  Country: None (occurrence: None)
  Receive Date: 20120314
  Receipt Date: 20120308
  Transmission Date: 20120608
  Serious: Yes (Life-Threatening, Hospitalization)
  Sender: FDA-Public Use
  Company Number: GB-ELI_LILLY_AND_COMPANY-GB201202001039

PATIENT
  Sex: Male

DRUGS (4)
  1. FOLIC ACID [Concomitant]
     Dosage: 400 MG, UNK
     Dates: start: 20111212
  2. CORTICOSTEROID NOS [Concomitant]
     Dosage: UNK
     Dates: start: 20111218
  3. VITAMIN B-12 [Concomitant]
     Dosage: 1000 MG, UNK
     Dates: start: 20111212
  4. PEMETREXED [Suspect]
     Indication: LUNG ADENOCARCINOMA RECURRENT
     Dosage: 500 MG/M2, OTHER
     Route: 042
     Dates: start: 20111219

REACTIONS (4)
  - SUPRAVENTRICULAR TACHYCARDIA [None]
  - LOWER RESPIRATORY TRACT INFECTION [None]
  - C-REACTIVE PROTEIN DECREASED [None]
  - NEUTROPENIA [None]
